FAERS Safety Report 7490755-4 (Version None)
Quarter: 2011Q2

REPORT INFORMATION
  Report Type: 
  Country: None (occurrence: None)
  Receive Date: 20110519
  Receipt Date: 20071128
  Transmission Date: 20111010
  Serious: Yes (Hospitalization, Other)
  Sender: FDA-Public Use
  Company Number: US-BAYER-200715014NA

PATIENT
  Age: 52 Year
  Sex: Male
  Weight: 104.31 kg

DRUGS (21)
  1. RED BLOOD CELLS [Concomitant]
     Dosage: 4 U, UNK
     Route: 042
     Dates: start: 20050518
  2. WHOLE BLOOD [Concomitant]
     Dosage: 27 U, UNK
     Route: 042
  3. AMICAR [Concomitant]
  4. ACETYLSALICYLIC ACID SRT [Concomitant]
     Dosage: 325MG
     Route: 048
     Dates: start: 20050516
  5. INTEGRILIN [Concomitant]
     Dosage: PER WEIGHT
     Route: 042
     Dates: start: 20050516, end: 20050517
  6. TRASYLOL [Suspect]
     Indication: CARDIOMYOPATHY
     Dosage: 1 ML INITIAL (TEST) DOSE
     Route: 042
     Dates: start: 20050518, end: 20050518
  7. TAGAMET [Concomitant]
     Route: 048
  8. METOPROLOL TARTRATE [Concomitant]
     Dosage: 12.5MG TWICE A DAY.
     Route: 048
     Dates: start: 20050516
  9. HEPARIN [Concomitant]
     Dosage: 100K-UNITS
     Route: 042
     Dates: start: 20050518
  10. NITROGLYCERIN [Concomitant]
     Dosage: 9.03MG
     Route: 042
     Dates: start: 20050818
  11. CARVEDILOL [Concomitant]
  12. LOVENOX [Concomitant]
     Dosage: 1MG PER KG.
     Route: 058
     Dates: start: 20050516
  13. LOPRESSOR [Concomitant]
     Dosage: UNK
     Route: 042
     Dates: start: 20050516
  14. LOPRESSOR [Concomitant]
     Dosage: 5MG
     Route: 042
     Dates: start: 20050518
  15. MILRINONE [Concomitant]
  16. TRASYLOL [Suspect]
     Dosage: 400CC, FOLLOWED BY 50CC PER HOUR.
     Route: 042
     Dates: start: 20050518, end: 20050518
  17. LISINOPRIL [Concomitant]
     Dosage: 2.5 MG, QD
     Route: 048
     Dates: start: 20050516
  18. PLASMA [Concomitant]
     Dosage: 3 U, UNK
     Route: 042
     Dates: start: 20051128
  19. LOVASTATIN [Concomitant]
     Dosage: 20 MG, QD
     Route: 048
     Dates: start: 20050516
  20. CALCIUM CHLORIDE [Concomitant]
     Dosage: 2000MG
     Route: 042
     Dates: start: 20050518
  21. CEFAZOLIN [Concomitant]
     Dosage: 3000MG
     Route: 042
     Dates: start: 20050518

REACTIONS (10)
  - RENAL FAILURE [None]
  - DISABILITY [None]
  - COMA [None]
  - CARDIAC FAILURE [None]
  - RESPIRATORY FAILURE [None]
  - RENAL INJURY [None]
  - ANAPHYLACTIC SHOCK [None]
  - MYOCARDIAL INFARCTION [None]
  - CARDIOVASCULAR DISORDER [None]
  - INJURY [None]
